FAERS Safety Report 26148362 (Version 1)
Quarter: 2025Q4

REPORT INFORMATION
  Report Type: Report from Study
  Country: CA (occurrence: None)
  Receive Date: 20251212
  Receipt Date: 20251212
  Transmission Date: 20260118
  Serious: Yes (Hospitalization, Other)
  Sender: UCB
  Company Number: CA-UCBSA-2025077562

PATIENT

DRUGS (1)
  1. BIMEKIZUMAB [Suspect]
     Active Substance: BIMEKIZUMAB
     Indication: Psoriasis
     Dosage: 320 MILLIGRAM, EV 8 WEEKS

REACTIONS (5)
  - Meniscus operation [Unknown]
  - Post procedural infection [Unknown]
  - Post procedural sepsis [Unknown]
  - Wound treatment [Unknown]
  - Immunodeficiency [Unknown]
